FAERS Safety Report 9120869 (Version 3)
Quarter: 2013Q4

REPORT INFORMATION
  Report Type: Spontaneous
  Country: CA (occurrence: CA)
  Receive Date: 20130226
  Receipt Date: 20131213
  Transmission Date: 20140711
  Serious: Yes (Hospitalization)
  Sender: FDA-Public Use
  Company Number: CA-GLAXOSMITHKLINE-A0948719A

PATIENT
  Age: 80 Year
  Sex: Male
  Weight: 70 kg

DRUGS (10)
  1. INFLUENZA VACCINE [Suspect]
     Indication: PROPHYLAXIS
     Route: 065
  2. ADVAIR [Suspect]
     Indication: ASTHMA
     Dosage: 1PUFF TWICE PER DAY
     Route: 055
     Dates: start: 1997
  3. VENTOLIN [Suspect]
     Indication: PRODUCT USED FOR UNKNOWN INDICATION
     Route: 065
  4. SPIRIVA [Suspect]
     Dosage: 1PUFF FOUR TIMES PER DAY
  5. THEODUR [Concomitant]
     Dosage: 300MG TWICE PER DAY
  6. ALTACE [Concomitant]
  7. FLOMAX [Concomitant]
     Indication: BENIGN PROSTATIC HYPERPLASIA
  8. GLYBURIDE [Concomitant]
     Dosage: 5MG FOUR TIMES PER DAY
  9. NORVASC [Concomitant]
     Dosage: 10MG PER DAY
  10. RAMIPRIL [Concomitant]
     Dosage: 5MG TWICE PER DAY

REACTIONS (21)
  - Urinary tract infection [Recovered/Resolved]
  - Pneumonia [Recovered/Resolved]
  - Diarrhoea [Unknown]
  - Lower respiratory tract infection [Unknown]
  - Chronic obstructive pulmonary disease [Recovered/Resolved]
  - Nasopharyngitis [Unknown]
  - Respiratory tract congestion [Unknown]
  - Dyspnoea [Recovered/Resolved]
  - Dyspnoea exertional [Unknown]
  - Colonoscopy [Unknown]
  - Polypectomy [Unknown]
  - Muscle strain [Recovering/Resolving]
  - Chest pain [Recovering/Resolving]
  - Decreased appetite [Not Recovered/Not Resolved]
  - Asthenia [Recovered/Resolved]
  - Dehydration [Recovered/Resolved]
  - Fall [Recovered/Resolved]
  - Weight decreased [Recovered/Resolved]
  - Activities of daily living impaired [Recovered/Resolved]
  - Vertigo [Recovered/Resolved]
  - Laceration [Recovered/Resolved]
